FAERS Safety Report 21918934 (Version 6)
Quarter: 2023Q2

REPORT INFORMATION
  Report Type: Spontaneous
  Country: IL (occurrence: IL)
  Receive Date: 20230127
  Receipt Date: 20230526
  Transmission Date: 20230721
  Serious: Yes (Other)
  Sender: FDA-Public Use
  Company Number: IL-BAYER-2023P004819

PATIENT
  Age: 35 Year
  Sex: Male

DRUGS (2)
  1. EYLEA [Suspect]
     Active Substance: AFLIBERCEPT
     Indication: Product used for unknown indication
     Dosage: UNK, UNK, ONCE, SOLUTION FOR INJECTION IN PRE-FILLED SYRINGE, 40MG/ML
     Route: 031
  2. EYLEA [Suspect]
     Active Substance: AFLIBERCEPT
     Dosage: UNK, UNK, ONCE, SOLUTION FOR INJECTION IN PRE-FILLED SYRINGE, 40MG/ML
     Route: 031
     Dates: start: 20230109, end: 20230109

REACTIONS (3)
  - Blindness transient [Recovered/Resolved]
  - Intraocular pressure increased [Recovered/Resolved]
  - Device use issue [Unknown]

NARRATIVE: CASE EVENT DATE: 20230109
